FAERS Safety Report 10332142 (Version 1)
Quarter: 2014Q3

REPORT INFORMATION
  Report Type: Report from Study
  Country: US (occurrence: US)
  Receive Date: 20140722
  Receipt Date: 20140722
  Transmission Date: 20150326
  Serious: Yes (Hospitalization)
  Sender: FDA-Public Use
  Company Number: US-BRISTOL-MYERS SQUIBB COMPANY-21192760

PATIENT
  Age: 43 Year
  Sex: Female
  Weight: 85 kg

DRUGS (9)
  1. CARBOPLATIN. [Suspect]
     Active Substance: CARBOPLATIN
     Indication: BREAST CANCER METASTATIC
     Dosage: 1DF-3DF AUC?21/DAY CYLICAL
     Route: 042
     Dates: start: 20140516
  2. SENNA [Concomitant]
     Active Substance: SENNA LEAF\SENNOSIDES\SENNOSIDES A AND B
  3. PACLITAXEL. [Suspect]
     Active Substance: PACLITAXEL
     Indication: BREAST CANCER METASTATIC
     Route: 042
     Dates: start: 20140516
  4. DEPLIN [Concomitant]
     Active Substance: LEVOMEFOLATE CALCIUM
  5. TRAMADOL [Concomitant]
     Active Substance: TRAMADOL
  6. COLACE [Concomitant]
     Active Substance: DOCUSATE SODIUM
  7. ADVIL [Concomitant]
     Active Substance: IBUPROFEN
  8. TRAZODONE HYDROCHLORIDE. [Concomitant]
     Active Substance: TRAZODONE HYDROCHLORIDE
  9. MORPHINE SULFATE. [Concomitant]
     Active Substance: MORPHINE SULFATE

REACTIONS (1)
  - Empyema [Recovering/Resolving]

NARRATIVE: CASE EVENT DATE: 20140601
